FAERS Safety Report 5662080-5 (Version None)
Quarter: 2008Q1

REPORT INFORMATION
  Report Type: 
  Country: None (occurrence: None)
  Receive Date: 20080212
  Receipt Date: 20071108
  Transmission Date: 20080703
  Serious: No
  Sender: FDA-Public Use
  Company Number: WAES 0711USA03303

PATIENT

DRUGS (1)
  1. ZOLINZA [Suspect]
     Dosage: PO
     Route: 048

REACTIONS (1)
  - DYSGEUSIA [None]
